FAERS Safety Report 5252336-2 (Version None)
Quarter: 2007Q1

REPORT INFORMATION
  Report Type: 
  Country: None (occurrence: None)
  Receive Date: 20070301
  Receipt Date: 20060627
  Transmission Date: 20070707
  Serious: Yes (Other)
  Sender: FDA-Public Use
  Company Number: US-BRISTOL-MYERS SQUIBB COMPANY-13396007

PATIENT
  Age: 69 Year
  Sex: Male

DRUGS (5)
  1. TAXOL [Suspect]
     Indication: LUNG NEOPLASM MALIGNANT
     Route: 042
     Dates: start: 20060530, end: 20060530
  2. TAXOL [Suspect]
     Indication: LARYNGEAL CANCER
     Route: 042
     Dates: start: 20060530, end: 20060530
  3. ALOXI [Concomitant]
  4. DECADRON [Concomitant]
  5. CARBOPLATIN [Concomitant]

REACTIONS (1)
  - EXTRAVASATION [None]
